FAERS Safety Report 26189840 (Version 2)
Quarter: 2025Q4

REPORT INFORMATION
  Report Type: Spontaneous
  Country: US (occurrence: US)
  Receive Date: 20251223
  Receipt Date: 20251223
  Transmission Date: 20260117
  Serious: Yes (Other)
  Sender: ROCHE
  Company Number: US-ROCHE-10000463377

PATIENT

DRUGS (1)
  1. MABTHERA [Suspect]
     Active Substance: RITUXIMAB
     Indication: Systemic lupus erythematosus

REACTIONS (6)
  - Off label use [Unknown]
  - Epilepsy [Unknown]
  - Leukopenia [Unknown]
  - Arthralgia [Unknown]
  - Uterine polyp [Unknown]
  - Anaphylactic reaction [Unknown]
